FAERS Safety Report 14402587 (Version 4)
Quarter: 2018Q2

REPORT INFORMATION
  Report Type: Report from Study
  Country: US (occurrence: US)
  Receive Date: 20180117
  Receipt Date: 20180531
  Transmission Date: 20180711
  Serious: Yes (Death, Hospitalization, Other)
  Sender: FDA-Public Use
  Company Number: US-GILEAD-2017-0310936

PATIENT
  Age: 79 Year
  Sex: Male

DRUGS (3)
  1. SILDENAFIL CITRATE. [Concomitant]
     Active Substance: SILDENAFIL CITRATE
  2. NIFEDIPINE. [Concomitant]
     Active Substance: NIFEDIPINE
  3. AMBRISENTAN [Suspect]
     Active Substance: AMBRISENTAN
     Indication: PRODUCT USED FOR UNKNOWN INDICATION
     Dosage: 10 MG, QD
     Route: 065
     Dates: start: 20170728

REACTIONS (10)
  - Death [Fatal]
  - Pulmonary hypertension [Unknown]
  - Malaise [Unknown]
  - Fall [Unknown]
  - Haemorrhage [Unknown]
  - Dyspnoea [Unknown]
  - Syncope [Not Recovered/Not Resolved]
  - Loss of consciousness [Unknown]
  - Muscular weakness [Unknown]
  - Gait inability [Unknown]

NARRATIVE: CASE EVENT DATE: 20180103
